FAERS Safety Report 6631078-2 (Version None)
Quarter: 2010Q1

REPORT INFORMATION
  Report Type: 
  Country: None (occurrence: None)
  Receive Date: 20100311
  Receipt Date: 20100303
  Transmission Date: 20100710
  Serious: Yes (Death)
  Sender: FDA-Public Use
  Company Number: DE-MERCK-1001DEU00109

PATIENT
  Age: 45 Year
  Sex: Female

DRUGS (1)
  1. MAXALT [Suspect]
     Route: 048

REACTIONS (5)
  - ANGIOEDEMA [None]
  - CIRCULATORY COLLAPSE [None]
  - DEATH [None]
  - NAUSEA [None]
  - VASCULITIS [None]
